FAERS Safety Report 9282612 (Version 3)
Quarter: 2013Q2

REPORT INFORMATION
  Report Type: Spontaneous
  Country: US (occurrence: None)
  Receive Date: 20101119
  Receipt Date: 20130419
  Transmission Date: 20140414
  Serious: Yes (Hospitalization)
  Sender: FDA-Public Use
  Company Number: 54973 RSAE102610LW-001

PATIENT
  Age: 12 Month
  Sex: Female

DRUGS (1)
  1. HYLAND^S TEETHING TABLETS [Suspect]
     Indication: TEETHING
     Dosage: 1 TAB  QD  OR  QOD  PM /1  MO

REACTIONS (6)
  - Pyrexia [None]
  - Pain [None]
  - Rhinorrhoea [None]
  - Pain [None]
  - Dysstasia [None]
  - Skin discolouration [None]
